FAERS Safety Report 19408565 (Version 1)
Quarter: 2021Q2

REPORT INFORMATION
  Report Type: Spontaneous
  Country: AT (occurrence: AT)
  Receive Date: 20210612
  Receipt Date: 20210612
  Transmission Date: 20210717
  Serious: Yes (Other)
  Sender: FDA-Public Use
  Company Number: AT-TEVA-2021-AT-1920523

PATIENT
  Age: 45 Year
  Sex: Male

DRUGS (1)
  1. DICLOBENE [Suspect]
     Active Substance: DICLOFENAC SODIUM
     Dosage: ACCORDING TO SPECIALIST INFORMATION
     Route: 065
     Dates: start: 20201229, end: 20210329

REACTIONS (5)
  - Lip swelling [Unknown]
  - Type IV hypersensitivity reaction [Unknown]
  - Throat tightness [Unknown]
  - Flushing [Unknown]
  - Pruritus [Unknown]

NARRATIVE: CASE EVENT DATE: 20201229
